FAERS Safety Report 18657468 (Version 1)
Quarter: 2020Q4

REPORT INFORMATION
  Report Type: Spontaneous
  Country: US (occurrence: US)
  Receive Date: 20201224
  Receipt Date: 20201224
  Transmission Date: 20210114
  Serious: No
  Sender: FDA-Public Use
  Company Number: US-HORIZON-2020HZN02726

PATIENT
  Age: 10 Year
  Sex: Male

DRUGS (2)
  1. RAVICTI [Suspect]
     Active Substance: GLYCEROL PHENYLBUTYRATE
     Indication: UREA CYCLE DISORDER
     Dosage: 1.8ML, ORAL THREE TIMES DAILY ; TIME INTERVAL:
     Route: 048
  2. CITRULLINE [Concomitant]
     Active Substance: CITRULLINE

REACTIONS (1)
  - Drug ineffective [Unknown]
